FAERS Safety Report 8244857-5 (Version None)
Quarter: 2012Q1

REPORT INFORMATION
  Report Type: 
  Country: None (occurrence: None)
  Receive Date: 20120329
  Receipt Date: 20111114
  Transmission Date: 20120608
  Serious: No
  Sender: FDA-Public Use
  Company Number: US-MYLANLABS-2011S1013260

PATIENT
  Age: 48 Year
  Sex: Male
  Weight: 88.45 kg

DRUGS (7)
  1. MULTI-VITAMIN [Concomitant]
  2. FENTANYL-100 [Suspect]
     Indication: BACK PAIN
     Dosage: CHANGED Q36H
     Route: 062
     Dates: start: 20110501, end: 20110617
  3. PERCOCET [Concomitant]
     Indication: BREAKTHROUGH PAIN
     Dosage: USING 10MG/325MG
  4. FENTANYL-100 [Suspect]
     Indication: EXOSTOSIS
     Dosage: CHANGED Q36H
     Route: 062
     Dates: start: 20110501, end: 20110617
  5. NEURONTIN [Concomitant]
     Indication: NEURALGIA
     Dosage: USING 400MG X 2 T.I.D.
  6. FENTANYL-100 [Suspect]
     Indication: NEURALGIA
     Dosage: CHANGED Q36H
     Route: 062
     Dates: start: 20110501, end: 20110617
  7. FENTANYL-100 [Suspect]
     Indication: CHEST PAIN
     Dosage: CHANGED Q36H
     Route: 062
     Dates: start: 20110501, end: 20110617

REACTIONS (6)
  - BALANCE DISORDER [None]
  - ASTHENIA [None]
  - HYPERHIDROSIS [None]
  - SOMNOLENCE [None]
  - DRUG EFFECT INCREASED [None]
  - NAUSEA [None]
